FAERS Safety Report 7393523-7 (Version None)
Quarter: 2011Q2

REPORT INFORMATION
  Report Type: 
  Country: None (occurrence: None)
  Receive Date: 20110405
  Receipt Date: 20110324
  Transmission Date: 20111010
  Serious: Yes (Hospitalization)
  Sender: FDA-Public Use
  Company Number: SG-RANBAXY-2011RR-41512

PATIENT
  Age: 29 Year
  Sex: Female

DRUGS (2)
  1. RISPERIDONE [Suspect]
     Indication: SCHIZOPHRENIA
     Dosage: 6 MG, UNK
  2. ARIPIPRAZOLE [Concomitant]
     Dosage: 15 MG, UNK

REACTIONS (1)
  - PITUITARY TUMOUR BENIGN [None]
